FAERS Safety Report 19996299 (Version 1)
Quarter: 2021Q4

REPORT INFORMATION
  Report Type: Spontaneous
  Country: US (occurrence: US)
  Receive Date: 20211025
  Receipt Date: 20211025
  Transmission Date: 20220303
  Serious: No
  Sender: FDA-Public Use
  Company Number: US-ENDO PHARMACEUTICALS INC-2021-011606

PATIENT
  Sex: Female

DRUGS (1)
  1. QWO [Suspect]
     Active Substance: COLLAGENASE CLOSTRIDIUM HISTOLYTICUM-AAES
     Indication: Peau d^orange
     Dosage: UNK UNKNOWN, (TREATMENT ONE) (12 INJECTIONS/ BUTTOCK, TOTAL 24 INJECTIONS)
     Route: 065
     Dates: start: 20210820

REACTIONS (3)
  - Feeling abnormal [Unknown]
  - Gait disturbance [Unknown]
  - Limb discomfort [Unknown]

NARRATIVE: CASE EVENT DATE: 20210101
